FAERS Safety Report 8954165 (Version 5)
Quarter: 2013Q4

REPORT INFORMATION
  Report Type: Spontaneous
  Country: US (occurrence: US)
  Receive Date: 20121207
  Receipt Date: 20131126
  Transmission Date: 20140711
  Serious: Yes (Hospitalization, Other)
  Sender: FDA-Public Use
  Company Number: US-009507513-1204USA00882

PATIENT
  Sex: Female
  Weight: 76.87 kg

DRUGS (8)
  1. FOSAMAX [Suspect]
     Indication: OSTEOPOROSIS
     Dosage: 10 MG, UNK
     Route: 048
     Dates: start: 199503, end: 200006
  2. FOSAMAX [Suspect]
     Indication: OSTEOPENIA
  3. ACTONEL [Suspect]
     Indication: OSTEOPOROSIS
     Dosage: 35 MG, UNK
     Route: 048
     Dates: start: 20001109, end: 200601
  4. ACTONEL [Suspect]
     Indication: OSTEOPENIA
  5. BONIVA [Suspect]
     Indication: OSTEOPOROSIS
     Dosage: 150 MG, UNK
     Route: 048
     Dates: start: 200603, end: 201003
  6. BONIVA [Suspect]
     Indication: OSTEOPENIA
  7. CALCIUM (UNSPECIFIED) [Concomitant]
     Dosage: UNK
     Dates: start: 1995
  8. CORTICOSTEROIDS (UNSPECIFIED) [Concomitant]
     Dosage: UNK
     Route: 008
     Dates: start: 1991

REACTIONS (29)
  - Femur fracture [Recovered/Resolved]
  - Intramedullary rod insertion [Unknown]
  - Intramedullary rod insertion [Unknown]
  - Fall [Unknown]
  - Surgery [Unknown]
  - Shoulder operation [Unknown]
  - Large intestinal obstruction [Unknown]
  - Femur fracture [Unknown]
  - Low turnover osteopathy [Unknown]
  - Fall [Unknown]
  - Head injury [Unknown]
  - Chest pain [Recovering/Resolving]
  - Diverticulum [Unknown]
  - Inner ear disorder [Unknown]
  - Hyperlipidaemia [Unknown]
  - Seasonal allergy [Unknown]
  - Depression [Unknown]
  - Spinal compression fracture [Unknown]
  - Osteoarthritis [Unknown]
  - Osteoarthritis [Unknown]
  - Intervertebral disc degeneration [Unknown]
  - Hypertension [Unknown]
  - Diverticulum [Unknown]
  - Pharyngitis [Unknown]
  - Anxiety [Unknown]
  - Oedema peripheral [Unknown]
  - Oedema peripheral [Unknown]
  - Dizziness [Unknown]
  - Gastrooesophageal reflux disease [Unknown]
